FAERS Safety Report 10376364 (Version 4)
Quarter: 2015Q2

REPORT INFORMATION
  Report Type: Spontaneous
  Country: CN (occurrence: CN)
  Receive Date: 20140811
  Receipt Date: 20150505
  Transmission Date: 20150821
  Serious: Yes (Death, Other)
  Sender: FDA-Public Use
  Company Number: CN-NAPPMUNDI-GBR-2014-0019874

PATIENT
  Sex: Female

DRUGS (6)
  1. MS CONTIN [Suspect]
     Active Substance: MORPHINE SULFATE
     Dosage: 390 MG, Q12H
     Route: 048
     Dates: start: 20140729
  2. MS CONTIN [Suspect]
     Active Substance: MORPHINE SULFATE
     Indication: CANCER PAIN
     Dosage: 400 MG, Q12H
     Route: 048
  3. GABAPENTIN. [Suspect]
     Active Substance: GABAPENTIN
     Indication: CANCER PAIN
     Dosage: 900 MG, SINGLE
     Route: 048
     Dates: start: 20140728, end: 20140728
  4. MS CONTIN [Suspect]
     Active Substance: MORPHINE SULFATE
     Dosage: 360 MG, Q12H
     Route: 048
     Dates: start: 20140725, end: 20140728
  5. MORPHINE HYDROCHLORIDE [Concomitant]
     Active Substance: MORPHINE HYDROCHLORIDE
     Dosage: 50 MG, DAILY
     Route: 042
  6. GABAPENTIN. [Suspect]
     Active Substance: GABAPENTIN
     Dosage: 100 MG, Q8H
     Route: 048
     Dates: start: 20140729

REACTIONS (11)
  - Heart rate increased [Unknown]
  - Disease progression [Fatal]
  - Constipation [Unknown]
  - Seizure [Unknown]
  - Intestinal fistula [Unknown]
  - Loss of consciousness [Recovered/Resolved]
  - Syncope [Recovered/Resolved]
  - Consciousness fluctuating [Recovered/Resolved]
  - Somnolence [Recovered/Resolved]
  - Inadequate analgesia [Unknown]
  - Intestinal haemorrhage [Fatal]

NARRATIVE: CASE EVENT DATE: 20140728
